FAERS Safety Report 9270710 (Version 1)
Quarter: 2013Q2

REPORT INFORMATION
  Report Type: Report from Study
  Country: MX (occurrence: MX)
  Receive Date: 20130504
  Receipt Date: 20130504
  Transmission Date: 20140414
  Serious: Yes (Death, Hospitalization)
  Sender: FDA-Public Use
  Company Number: MX-ACCORD-017461

PATIENT
  Sex: 0

DRUGS (4)
  1. EPIRUBICIN HYDROCHLORIDE [Suspect]
     Indication: CHEMOTHERAPY
     Dosage: NEOADJUVANT CHEMOTHERAPY: 3FEC+2D,BY DAY 1, EVERY 4 WEEKS AND A FIXED NUMBER OF 4?CYCLES
     Route: 064
  2. FLUOROURACIL [Suspect]
     Indication: CHEMOTHERAPY
     Dosage: NEOADJUVANT CHEMOTHERAPY: 3FEC+2D,BY DAY 1, EVERY 4 WEEKS .
     Route: 064
  3. DOCETAXEL [Suspect]
     Indication: CHEMOTHERAPY
     Dosage: NEOADJUVANT CHEMOTHERAPY: 3FEC+2D
     Route: 064
  4. CYCLOPHOSPHAMIDE [Suspect]
     Indication: CHEMOTHERAPY
     Dosage: NEOADJUVANT CHEMOTHERAPY: 3FEC+2D,BY DAY 1, EVERY 4 WEEKS AND A FIXED NUMBER OF 4 CYCLES.
     Route: 064

REACTIONS (3)
  - Respiratory distress [Unknown]
  - Low birth weight baby [Fatal]
  - Premature baby [Fatal]
